FAERS Safety Report 11840677 (Version 8)
Quarter: 2018Q1

REPORT INFORMATION
  Report Type: Report from Study
  Country: US (occurrence: US)
  Receive Date: 20151216
  Receipt Date: 20180330
  Transmission Date: 20180508
  Serious: Yes (Life-Threatening, Hospitalization, Other)
  Sender: FDA-Public Use
  Company Number: US-SA-2015SA212789

PATIENT
  Age: 68 Year
  Sex: Female

DRUGS (16)
  1. TYLENOL [Concomitant]
     Active Substance: ACETAMINOPHEN
     Indication: HEADACHE
  2. GILENYA [Concomitant]
     Active Substance: FINGOLIMOD HYDROCHLORIDE
     Indication: MULTIPLE SCLEROSIS
  3. CALCIUM [Concomitant]
     Active Substance: CALCIUM
     Route: 065
  4. TYLENOL [Concomitant]
     Active Substance: ACETAMINOPHEN
     Indication: DEMENTIA
     Route: 065
  5. LEMTRADA [Suspect]
     Active Substance: ALEMTUZUMAB
     Indication: MULTIPLE SCLEROSIS
     Route: 041
     Dates: start: 20151130, end: 20151204
  6. VALACICLOVIR [Concomitant]
     Active Substance: VALACYCLOVIR HYDROCHLORIDE
  7. GAS-X [Concomitant]
     Active Substance: DIMETHICONE
     Indication: FLATULENCE
  8. TECFIDERA [Concomitant]
     Active Substance: DIMETHYL FUMARATE
     Indication: MULTIPLE SCLEROSIS
  9. AVONEX [Concomitant]
     Active Substance: INTERFERON BETA-1A
     Indication: MULTIPLE SCLEROSIS
  10. ELIQUIS [Suspect]
     Active Substance: APIXABAN
     Indication: ATRIAL FIBRILLATION
     Route: 065
     Dates: start: 201512
  11. LOSARTAN. [Concomitant]
     Active Substance: LOSARTAN
     Indication: HYPERTENSION
     Route: 065
  12. ASPIRIN. [Suspect]
     Active Substance: ASPIRIN
     Dosage: INCREASED FROM 81 MG TO 325 MG
     Route: 065
  13. CARTIA XT [Concomitant]
     Active Substance: DILTIAZEM HYDROCHLORIDE
     Route: 065
  14. TOPROL XL [Concomitant]
     Active Substance: METOPROLOL SUCCINATE
     Indication: HYPERTENSION
     Route: 065
  15. ASPIRIN. [Concomitant]
     Active Substance: ASPIRIN
     Route: 065
  16. VITAMIN D [Concomitant]
     Active Substance: CHOLECALCIFEROL
     Route: 065

REACTIONS (23)
  - Pollakiuria [Recovered/Resolved]
  - Dysuria [Not Recovered/Not Resolved]
  - Vascular occlusion [Recovered/Resolved]
  - Gait inability [Recovered/Resolved]
  - Eye haemorrhage [Recovered/Resolved]
  - Rash pruritic [Not Recovered/Not Resolved]
  - Urinary tract infection [Unknown]
  - Insomnia [Recovered/Resolved]
  - Vulvovaginal mycotic infection [Recovered/Resolved]
  - Weight increased [Unknown]
  - Cough [Not Recovered/Not Resolved]
  - Ill-defined disorder [Unknown]
  - Weight decreased [Unknown]
  - Hypertension [Recovering/Resolving]
  - Muscle spasms [Not Recovered/Not Resolved]
  - Rash erythematous [Not Recovered/Not Resolved]
  - Constipation [Recovered/Resolved]
  - Back injury [Recovered/Resolved]
  - Muscle spasms [Not Recovered/Not Resolved]
  - Cystitis [Recovered/Resolved]
  - Atrial fibrillation [Recovered/Resolved]
  - Mental disorder [Unknown]
  - Abdominal pain upper [Recovered/Resolved]

NARRATIVE: CASE EVENT DATE: 2015
